FAERS Safety Report 7760076-0 (Version None)
Quarter: 2011Q3

REPORT INFORMATION
  Report Type: 
  Country: None (occurrence: None)
  Receive Date: 20110919
  Receipt Date: 20110914
  Transmission Date: 20111222
  Serious: Yes (Other)
  Sender: FDA-Public Use
  Company Number: JP-PFIZER INC-2010145353

PATIENT
  Sex: Male

DRUGS (3)
  1. GABAPENTIN [Suspect]
     Indication: PAIN
     Dosage: UNK DOSE TWICE DAILY, IN THE MORNING AND EVENING
     Route: 048
  2. LYRICA [Suspect]
     Dosage: UNK
  3. AMITRIPTYLINE HCL [Concomitant]
     Indication: SLEEP DISORDER
     Dosage: UNK BEFORE BEDTIME
     Dates: start: 20110804

REACTIONS (4)
  - BLOOD PRESSURE INCREASED [None]
  - DIPLOPIA [None]
  - PRURITUS [None]
  - CARDIAC DISORDER [None]
